FAERS Safety Report 4525881-2 (Version None)
Quarter: 2004Q4

REPORT INFORMATION
  Report Type: 
  Country: None (occurrence: None)
  Receive Date: 20041213
  Receipt Date: 20041025
  Transmission Date: 20050328
  Serious: Yes (Death)
  Sender: FDA-Public Use
  Company Number: US-MERCK-0410USA04079

PATIENT
  Age: 50 Year

DRUGS (7)
  1. VIOXX [Suspect]
     Route: 048
  2. METFORMIN [Suspect]
     Route: 048
  3. METFORMIN [Suspect]
     Route: 048
  4. METFORMIN [Suspect]
     Route: 048
  5. AMLODIPINE BESYLATE AND BENAZEPRIL HYDROCHLORIDE [Suspect]
     Route: 048
  6. AMLODIPINE BESYLATE AND BENAZEPRIL HYDROCHLORIDE [Suspect]
     Route: 048
  7. AMLODIPINE BESYLATE AND BENAZEPRIL HYDROCHLORIDE [Suspect]
     Route: 048

REACTIONS (2)
  - COMPLETED SUICIDE [None]
  - MULTIPLE DRUG OVERDOSE [None]
